FAERS Safety Report 15306511 (Version 1)
Quarter: 2018Q3

REPORT INFORMATION
  Report Type: Spontaneous
  Country: CA (occurrence: CA)
  Receive Date: 20180822
  Receipt Date: 20180822
  Transmission Date: 20181010
  Serious: Yes (Life-Threatening, Hospitalization, Other)
  Sender: FDA-Public Use
  Company Number: CA-BAUSCH-BL-2018-022666

PATIENT
  Age: 82 Year
  Sex: Female

DRUGS (9)
  1. OLANZAPINE. [Suspect]
     Active Substance: OLANZAPINE
     Dosage: UPTO 10 MG
     Route: 065
  2. MIRTAZAPINE. [Suspect]
     Active Substance: MIRTAZAPINE
     Indication: CHOKING SENSATION
     Dosage: UPTO 45 MG
     Route: 065
  3. RISPERIDONE. [Suspect]
     Active Substance: RISPERIDONE
     Indication: CHOKING SENSATION
     Route: 065
  4. VENLAFAXINE [Suspect]
     Active Substance: VENLAFAXINE HYDROCHLORIDE
     Indication: CHOKING SENSATION
     Route: 065
  5. OLANZAPINE. [Suspect]
     Active Substance: OLANZAPINE
     Indication: CHOKING SENSATION
     Dosage: INITIAL DOSE
     Route: 065
  6. LORAZEPAM. [Suspect]
     Active Substance: LORAZEPAM
     Indication: CHOKING SENSATION
     Route: 065
  7. DULOXETINE. [Suspect]
     Active Substance: DULOXETINE
     Indication: CHOKING SENSATION
     Dosage: UPTO 60 MG
     Route: 065
  8. DULOXETINE. [Suspect]
     Active Substance: DULOXETINE
     Dosage: INITIAL DOSE
     Route: 065
  9. MIRTAZAPINE. [Suspect]
     Active Substance: MIRTAZAPINE
     Dosage: INITIAL DOSE
     Route: 065

REACTIONS (2)
  - Tardive dyskinesia [Unknown]
  - Drug ineffective [Recovered/Resolved]
